FAERS Safety Report 23565919 (Version 1)
Quarter: 2024Q1

REPORT INFORMATION
  Report Type: Spontaneous
  Country: US (occurrence: None)
  Receive Date: 20240225
  Receipt Date: 20240225
  Transmission Date: 20240410
  Serious: Yes (Hospitalization, Disabling)
  Sender: FDA-Public Use
  Company Number: None

PATIENT
  Age: 15 Year
  Sex: Male
  Weight: 90 kg

DRUGS (1)
  1. ISOTRETINOIN [Suspect]
     Active Substance: ISOTRETINOIN
     Indication: Acne
     Dates: start: 19911115, end: 19920401

REACTIONS (9)
  - Irritable bowel syndrome [None]
  - Erectile dysfunction [None]
  - Rheumatoid arthritis [None]
  - Insomnia [None]
  - Fibromyalgia [None]
  - Depression [None]
  - Anxiety [None]
  - Bone development abnormal [None]
  - Chronic fatigue syndrome [None]

NARRATIVE: CASE EVENT DATE: 19911201
